FAERS Safety Report 4964232-6 (Version None)
Quarter: 2006Q2

REPORT INFORMATION
  Report Type: 
  Country: None (occurrence: None)
  Receive Date: 20060406
  Receipt Date: 20060116
  Transmission Date: 20061013
  Serious: Yes (Hospitalization)
  Sender: FDA-Public Use
  Company Number: JP-BOEHRINGER INGELHEIM PHARMACEUTICALS, INC.-2006-DE-00410GL

PATIENT
  Sex: Female

DRUGS (14)
  1. TELMISARTAN [Suspect]
     Indication: HYPERTENSION
     Route: 048
     Dates: start: 20051026
  2. ALLOPURINOL [Suspect]
     Indication: HYPERURICAEMIA
     Route: 048
     Dates: start: 20051117, end: 20051213
  3. CEFOZOPRAN HYDROCHLORIDE [Suspect]
     Indication: ENTEROCOLITIS
     Route: 042
     Dates: start: 20051208, end: 20051214
  4. FOSMICIN [Concomitant]
     Dates: start: 20051206, end: 20051209
  5. LACT. ACID-PRODUCING ORGS [Concomitant]
     Dates: start: 20051206, end: 20051213
  6. FRUSEMIDE [Concomitant]
     Dates: start: 20050514
  7. SODIUM BICARBONATE [Concomitant]
     Dates: start: 20050515
  8. POLYSTYRENE SULPHONATE [Concomitant]
     Dates: start: 20050515, end: 20050522
  9. AMLODIPINE BESYLATE [Concomitant]
  10. DOXAZOSIN MESYLATE [Concomitant]
     Dates: start: 20050517
  11. NITROGLYCERIN [Concomitant]
  12. THEOPHYLLINE [Concomitant]
  13. TEPRENONE [Concomitant]
     Dates: start: 20050523
  14. TIZANIDINE HCL [Concomitant]
     Dates: start: 20051026, end: 20051213

REACTIONS (12)
  - ALANINE AMINOTRANSFERASE INCREASED [None]
  - ASPARTATE AMINOTRANSFERASE INCREASED [None]
  - DIARRHOEA [None]
  - ENTERITIS [None]
  - ENTERITIS INFECTIOUS [None]
  - EOSINOPHIL COUNT INCREASED [None]
  - LIVER DISORDER [None]
  - PANCYTOPENIA [None]
  - PRURITUS [None]
  - PYREXIA [None]
  - RASH [None]
  - VOMITING [None]
